FAERS Safety Report 8967683 (Version 1)
Quarter: 2012Q4

REPORT INFORMATION
  Report Type: Spontaneous
  Country: US (occurrence: None)
  Receive Date: 20121206
  Receipt Date: 20121206
  Transmission Date: 20130627
  Serious: Yes (Other)
  Sender: FDA-Public Use
  Company Number: 2012MA013749

PATIENT
  Age: 37 Year
  Sex: Female

DRUGS (6)
  1. M-ZOLE 3 COMBI PACK [Suspect]
     Indication: YEAST INFECTION
     Route: 067
     Dates: start: 20121128, end: 20121130
  2. PLAVIX [Concomitant]
  3. METOPROLOL [Concomitant]
  4. DIOVAN HCT [Concomitant]
  5. ZOCOR [Concomitant]
  6. LEVOTHYROXINE [Concomitant]

REACTIONS (2)
  - Abdominal pain [None]
  - Vaginal haemorrhage [None]
